FAERS Safety Report 4523260-5 (Version None)
Quarter: 2004Q4

REPORT INFORMATION
  Report Type: 
  Country: None (occurrence: None)
  Receive Date: 20041209
  Receipt Date: 20041209
  Transmission Date: 20050328
  Serious: Yes (Hospitalization, Disabling)
  Sender: FDA-Public Use
  Company Number: None

PATIENT
  Age: 73 Year
  Sex: Male
  Weight: 63.5036 kg

DRUGS (3)
  1. CELECOXIB 100 MG [Suspect]
     Indication: BACK PAIN
     Dosage: CAPSULE 2 X DAY
     Dates: start: 20000531, end: 20020101
  2. LITHIUM [Concomitant]
  3. PROSAC [Concomitant]

REACTIONS (2)
  - TRANSIENT ISCHAEMIC ATTACK [None]
  - VASCULAR DEMENTIA [None]
